APPROVED DRUG PRODUCT: LEVONORGESTREL AND ETHINYL ESTRADIOL AND ETHINYL ESTRADIOL
Active Ingredient: ETHINYL ESTRADIOL; LEVONORGESTREL
Strength: 0.02MG,0.1MG;0.01MG,N/A
Dosage Form/Route: TABLET;ORAL
Application: A205131 | Product #001 | TE Code: AB
Applicant: XIROMED PHARMA ESPANA SL
Approved: Dec 14, 2017 | RLD: No | RS: No | Type: RX